FAERS Safety Report 4423071-5 (Version None)
Quarter: 2004Q3

REPORT INFORMATION
  Report Type: 
  Country: None (occurrence: None)
  Receive Date: 20040806
  Receipt Date: 20040721
  Transmission Date: 20050211
  Serious: Yes (Other)
  Sender: FDA-Public Use
  Company Number: PT-JNJFOC-20031002138

PATIENT
  Age: 40 Year
  Sex: Female

DRUGS (4)
  1. REMICADE [Suspect]
     Indication: RHEUMATOID ARTHRITIS
     Dosage: 5 MG/KG, INTRAVENOUS
     Route: 042
  2. METHOTREXATE [Concomitant]
  3. CORTICOSTEROID NOS (CORTICOSTEROID NOS) [Concomitant]
  4. NONSTEROIDAL ANTI-INFLAMMATORY AGENT (NSAID'S) [Concomitant]

REACTIONS (7)
  - ACOUSTIC NEUROMA [None]
  - DEMYELINATION [None]
  - DISEASE RECURRENCE [None]
  - DIZZINESS [None]
  - FACIAL PARESIS [None]
  - HYPOTENSION [None]
  - POLYARTHRITIS [None]
